FAERS Safety Report 5006971-7 (Version None)
Quarter: 2006Q2

REPORT INFORMATION
  Report Type: 
  Country: None (occurrence: None)
  Receive Date: 20060517
  Receipt Date: 20060501
  Transmission Date: 20061013
  Serious: Yes (Hospitalization)
  Sender: FDA-Public Use
  Company Number: DSA_28118_2006

PATIENT
  Age: 24 Year
  Sex: Male

DRUGS (9)
  1. TAVOR [Suspect]
     Dosage: DF ONCE PO
     Route: 048
     Dates: start: 20060429, end: 20060429
  2. AKINETON [Suspect]
     Dosage: DF ONCE PO
     Route: 048
     Dates: start: 20060429, end: 20060429
  3. CHLORAL HYDRATE [Suspect]
     Dosage: DF ONCE PO
     Route: 048
     Dates: start: 20060429, end: 20060429
  4. FORADIL [Suspect]
     Dosage: DF ONCE PO
     Route: 048
     Dates: start: 20060429, end: 20060429
  5. GLIANIMON [Suspect]
     Dosage: DF ONCE PO
     Route: 048
     Dates: start: 20060429, end: 20060429
  6. NEUROCIL [Suspect]
     Dosage: DF ONCE PO
     Route: 048
     Dates: start: 20060429, end: 20060429
  7. NIPOLEPT [Suspect]
     Dosage: DF ONCE PO
     Route: 048
     Dates: start: 20060429, end: 20060429
  8. THEOPHYLLINE [Suspect]
     Dosage: DF ONCE PO
     Route: 048
     Dates: start: 20060429, end: 20060429
  9. ZELDOX [Suspect]
     Dosage: DF ONCE PO
     Route: 048
     Dates: start: 20060429, end: 20060429

REACTIONS (4)
  - MULTIPLE DRUG OVERDOSE [None]
  - SOMNOLENCE [None]
  - SUICIDE ATTEMPT [None]
  - TACHYCARDIA [None]
